FAERS Safety Report 4555736-9 (Version None)
Quarter: 2005Q1

REPORT INFORMATION
  Report Type: 
  Country: None (occurrence: None)
  Receive Date: 20050112
  Receipt Date: 20040303
  Transmission Date: 20050727
  Serious: Yes (Life-Threatening, Hospitalization, Other)
  Sender: FDA-Public Use
  Company Number: 200414543BWH

PATIENT
  Age: 77 Year
  Sex: Female
  Weight: 83.9154 kg

DRUGS (6)
  1. CIPRO [Suspect]
     Indication: URINARY TRACT INFECTION
     Dosage: 1000 MG, TOTAL DAILY, ORAL
     Route: 048
     Dates: start: 20040131, end: 20040209
  2. QUININE [Suspect]
     Dosage: 25 MG, TOTAL DAILY, ORAL
     Route: 048
     Dates: start: 20040202
  3. VITAMIN E [Concomitant]
  4. VITAMIN C [Concomitant]
  5. MULTI-VITAMIN [Concomitant]
  6. GLUCOSAMINE W/CHONDROITIN SULFATES [Concomitant]

REACTIONS (5)
  - EPISTAXIS [None]
  - GINGIVAL BLEEDING [None]
  - ORAL MUCOSAL BLISTERING [None]
  - PLATELET COUNT DECREASED [None]
  - SKIN DISCOLOURATION [None]
